FAERS Safety Report 7108556-5 (Version None)
Quarter: 2010Q4

REPORT INFORMATION
  Report Type: 
  Country: None (occurrence: None)
  Receive Date: 20101117
  Receipt Date: 20100902
  Transmission Date: 20110411
  Serious: No
  Sender: FDA-Public Use
  Company Number: A0879261A

PATIENT
  Age: 62 Year
  Sex: Female

DRUGS (8)
  1. VOTRIENT [Suspect]
     Dosage: 800MG PER DAY
     Route: 048
     Dates: start: 20100501, end: 20100830
  2. AROMASIN [Concomitant]
  3. MORPHINE [Concomitant]
  4. SENOKOT [Concomitant]
  5. COLACE [Concomitant]
  6. PREVACID [Concomitant]
  7. ZOFRAN [Concomitant]
  8. LOVENOX [Concomitant]

REACTIONS (1)
  - DRUG INEFFECTIVE [None]
